FAERS Safety Report 5528341-5 (Version None)
Quarter: 2007Q4

REPORT INFORMATION
  Report Type: 
  Country: None (occurrence: None)
  Receive Date: 20071121
  Receipt Date: 20071107
  Transmission Date: 20080405
  Serious: Yes (Other)
  Sender: FDA-Public Use
  Company Number: 8028062

PATIENT
  Age: 38 Year
  Sex: Male

DRUGS (4)
  1. PREDNISOLONE [Suspect]
     Indication: RENAL AND PANCREAS TRANSPLANT
  2. ANTITHYMOCYTE IMMUNOGLOBULIN UNSPECIFIED [Suspect]
  3. MYCOPHENOLATE MOFETIL [Suspect]
  4. PROGRAF [Suspect]

REACTIONS (3)
  - CARPAL TUNNEL SYNDROME [None]
  - POST PROCEDURAL COMPLICATION [None]
  - SYSTEMIC INFLAMMATORY RESPONSE SYNDROME [None]
